FAERS Safety Report 25145565 (Version 6)
Quarter: 2025Q3

REPORT INFORMATION
  Report Type: Spontaneous
  Country: US (occurrence: US)
  Receive Date: 20250401
  Receipt Date: 20250805
  Transmission Date: 20251021
  Serious: No
  Sender: PFIZER
  Company Number: US-PFIZER INC-202500052590

PATIENT
  Age: 11 Year
  Sex: Female
  Weight: 29.48 kg

DRUGS (4)
  1. SOMATROPIN [Suspect]
     Active Substance: SOMATROPIN
     Indication: Short stature
     Dosage: 1.4 MG, DAILY
     Route: 058
     Dates: start: 20240304
  2. SOMATROPIN [Suspect]
     Active Substance: SOMATROPIN
     Dosage: 1.4 MG, DAILY
     Dates: start: 20250228
  3. MIRALAX [Concomitant]
     Active Substance: POLYETHYLENE GLYCOL 3350
     Indication: Constipation
     Dosage: CAPFUL TWICE A WEEK
  4. VITAMINS NOS [Concomitant]
     Active Substance: VITAMINS
     Indication: Nutritional supplementation
     Dosage: 2 GUMMIES EVERY NIGHT

REACTIONS (4)
  - Injection site pain [Unknown]
  - Device issue [Unknown]
  - Product contamination [Unknown]
  - Device physical property issue [Unknown]
